FAERS Safety Report 12677883 (Version 1)
Quarter: 2016Q3

REPORT INFORMATION
  Report Type: Spontaneous
  Country: US (occurrence: US)
  Receive Date: 20160823
  Receipt Date: 20160823
  Transmission Date: 20161109
  Serious: No
  Sender: FDA-Public Use
  Company Number: US-TARO-2015TAR00905

PATIENT
  Sex: Female
  Weight: 49.89 kg

DRUGS (3)
  1. WARFARIN SODIUM TABLETS USP 2.5MG [Suspect]
     Active Substance: WARFARIN SODIUM
     Dosage: 2.5 MG, 1X/DAY
     Route: 048
     Dates: start: 201509
  2. WARFARIN SODIUM TABLETS USP 2.5MG [Suspect]
     Active Substance: WARFARIN SODIUM
     Dosage: 5 MG, 5X/WEEK
     Route: 048
     Dates: start: 201501, end: 201509
  3. WARFARIN SODIUM TABLETS USP 2.5MG [Suspect]
     Active Substance: WARFARIN SODIUM
     Dosage: 2.5 MG, 2X/WEEK
     Route: 048
     Dates: start: 201501, end: 201509

REACTIONS (6)
  - Urticaria [Recovering/Resolving]
  - Pruritus [Recovering/Resolving]
  - Product substitution issue [Not Recovered/Not Resolved]
  - Burning sensation [Recovering/Resolving]
  - Rash [Recovering/Resolving]
  - Alopecia [Not Recovered/Not Resolved]

NARRATIVE: CASE EVENT DATE: 2015
